FAERS Safety Report 12239103 (Version 2)
Quarter: 2016Q2

REPORT INFORMATION
  Report Type: Report from Study
  Country: BR (occurrence: BR)
  Receive Date: 20160405
  Receipt Date: 20160503
  Transmission Date: 20160815
  Serious: Yes (Hospitalization)
  Sender: FDA-Public Use
  Company Number: PHHY2016BR017373

PATIENT
  Sex: Female
  Weight: 44 kg

DRUGS (1)
  1. EXJADE [Suspect]
     Active Substance: DEFERASIROX
     Indication: SICKLE CELL ANAEMIA
     Dosage: 45 MG/KG, QD (4 DF OF 500 MG)
     Route: 048
     Dates: end: 2015

REACTIONS (11)
  - Drug abuse [Unknown]
  - Pain [Unknown]
  - Speech disorder [Unknown]
  - Dyspnoea [Unknown]
  - Chest pain [Unknown]
  - Haemoglobin decreased [Unknown]
  - Fatigue [Unknown]
  - Arthralgia [Unknown]
  - Pain in extremity [Unknown]
  - Sickle cell anaemia with crisis [Unknown]
  - Back pain [Unknown]
